FAERS Safety Report 11333900 (Version 2)
Quarter: 2015Q3

REPORT INFORMATION
  Report Type: Spontaneous
  Country: US (occurrence: US)
  Receive Date: 20150803
  Receipt Date: 20150921
  Transmission Date: 20151125
  Serious: No
  Sender: FDA-Public Use
  Company Number: US-PFIZER INC-2015253973

PATIENT
  Age: 58 Year
  Sex: Female

DRUGS (3)
  1. TECFIDERA [Concomitant]
     Active Substance: DIMETHYL FUMARATE
     Indication: MULTIPLE SCLEROSIS
     Dosage: UNK, 2X/DAY
     Dates: start: 20130801
  2. BACLOFEN. [Concomitant]
     Active Substance: BACLOFEN
     Indication: MULTIPLE SCLEROSIS
     Dosage: 10 MG, 1X/DAY (AT BEDTIME)
  3. LYRICA [Suspect]
     Active Substance: PREGABALIN
     Indication: MULTIPLE SCLEROSIS
     Dosage: 250 MG, DAILY (100 MG MORNING, 100MG AFTERNOON, 50 MG BEDTIME)
     Dates: start: 2005

REACTIONS (5)
  - Mental disorder [Recovered/Resolved]
  - Pain [Recovered/Resolved]
  - Fatigue [Recovered/Resolved]
  - Condition aggravated [Recovered/Resolved]
  - Dizziness [Recovered/Resolved]
